FAERS Safety Report 11534204 (Version 1)
Quarter: 2015Q3

REPORT INFORMATION
  Report Type: Spontaneous
  Country: US (occurrence: US)
  Receive Date: 20150922
  Receipt Date: 20150922
  Transmission Date: 20151125
  Serious: No
  Sender: FDA-Public Use
  Company Number: US-ACCORD-032954

PATIENT
  Age: 78 Year
  Sex: Female

DRUGS (3)
  1. MECLIZINE [Concomitant]
     Active Substance: MECLIZINE\MECLIZINE HYDROCHLORIDE
  2. METFORMIN [Concomitant]
     Active Substance: METFORMIN HYDROCHLORIDE
  3. AMITRIPTYLINE [Suspect]
     Active Substance: AMITRIPTYLINE
     Indication: SOMNOLENCE
     Dosage: STRENGTH: 10 MG?FREQUENCY : 1/2 TO 1 TABLET QPM PRN (AS NEEDED)
     Route: 048
     Dates: start: 20150801

REACTIONS (3)
  - Hypoaesthesia oral [Recovering/Resolving]
  - Off label use [Unknown]
  - Burning sensation [Recovering/Resolving]

NARRATIVE: CASE EVENT DATE: 20150805
